FAERS Safety Report 21801601 (Version 6)
Quarter: 2023Q2

REPORT INFORMATION
  Report Type: Report from Study
  Country: AE (occurrence: None)
  Receive Date: 20221230
  Receipt Date: 20230603
  Transmission Date: 20230721
  Serious: Yes (Life-Threatening, Hospitalization)
  Sender: FDA-Public Use
  Company Number: 2022A417505

PATIENT
  Age: 19 Year
  Sex: Male
  Weight: 48 kg

DRUGS (1)
  1. CILGAVIMAB\TIXAGEVIMAB [Suspect]
     Active Substance: CILGAVIMAB\TIXAGEVIMAB
     Indication: COVID-19 prophylaxis
     Dosage: 3.0ML ONCE/SINGLE ADMINISTRATION
     Route: 030
     Dates: start: 20221110

REACTIONS (2)
  - Pneumonia [Recovered/Resolved]
  - Acute kidney injury [Recovered/Resolved]

NARRATIVE: CASE EVENT DATE: 20221203
